FAERS Safety Report 12492723 (Version 1)
Quarter: 2016Q2

REPORT INFORMATION
  Report Type: Spontaneous
  Country: US (occurrence: None)
  Receive Date: 20160622
  Receipt Date: 20160622
  Transmission Date: 20160815
  Serious: No
  Sender: FDA-Public Use
  Company Number: None

PATIENT
  Age: 52 Year
  Sex: Female

DRUGS (1)
  1. BOTOX [Suspect]
     Active Substance: ONABOTULINUMTOXINA
     Indication: MIGRAINE
     Dosage: 200  UNITS EVERY 3 MONTHS INTRAMUSCULAR
     Route: 030
     Dates: start: 20160222

REACTIONS (2)
  - Injection site pruritus [None]
  - Pruritus [None]

NARRATIVE: CASE EVENT DATE: 20160601
